FAERS Safety Report 15517027 (Version 1)
Quarter: 2018Q4

REPORT INFORMATION
  Report Type: Spontaneous
  Country: FR (occurrence: FR)
  Receive Date: 20181017
  Receipt Date: 20181017
  Transmission Date: 20190205
  Serious: Yes (Hospitalization)
  Sender: FDA-Public Use
  Company Number: FR-MYLANLABS-2018M1075972

PATIENT
  Age: 44 Year
  Sex: Male
  Weight: 70 kg

DRUGS (3)
  1. METHOTREXATE MYLAN [Suspect]
     Active Substance: METHOTREXATE SODIUM
     Indication: BURKITT^S LYMPHOMA
     Dosage: 6.2 G, QD
     Route: 041
     Dates: start: 20180430, end: 20180430
  2. LANSOPRAZOLE. [Concomitant]
     Active Substance: LANSOPRAZOLE
     Indication: PEPTIC ULCER
     Dosage: 30 MG, QD
     Route: 048
     Dates: end: 20180419
  3. ZELITREX 500 MG, COMPRIM? ENROB? [Concomitant]
     Active Substance: VALACYCLOVIR HYDROCHLORIDE
     Indication: VIRAL INFECTION
     Dosage: 1 DF, QD
     Route: 048

REACTIONS (13)
  - Hyperbilirubinaemia [Not Recovered/Not Resolved]
  - Acute kidney injury [Not Recovered/Not Resolved]
  - Purpura [Not Recovered/Not Resolved]
  - Febrile bone marrow aplasia [Not Recovered/Not Resolved]
  - Hepatocellular injury [Recovered/Resolved]
  - Rash maculo-papular [Not Recovered/Not Resolved]
  - Overdose [Recovered/Resolved]
  - Colitis [Not Recovered/Not Resolved]
  - Stomatitis [Not Recovered/Not Resolved]
  - Chemotherapeutic drug level increased [Recovered/Resolved]
  - Diarrhoea [Recovered/Resolved]
  - Encephalopathy [Not Recovered/Not Resolved]
  - Haemodynamic instability [Not Recovered/Not Resolved]

NARRATIVE: CASE EVENT DATE: 201805
